FAERS Safety Report 8225247-8 (Version None)
Quarter: 2012Q1

REPORT INFORMATION
  Report Type: 
  Country: None (occurrence: None)
  Receive Date: 20120321
  Receipt Date: 20120316
  Transmission Date: 20120608
  Serious: Yes (Hospitalization, Other)
  Sender: FDA-Public Use
  Company Number: US-ACTELION-A-NJ2012-60731

PATIENT

DRUGS (3)
  1. REVATIO [Concomitant]
  2. TRACLEER [Suspect]
     Indication: PULMONARY ARTERIAL HYPERTENSION
     Dosage: UNK
     Route: 048
     Dates: start: 20090224
  3. CALCIUM CHANNEL BLOCKERS [Concomitant]

REACTIONS (6)
  - VIRAL INFECTION [None]
  - CHRONIC OBSTRUCTIVE PULMONARY DISEASE [None]
  - DYSPNOEA [None]
  - PYREXIA [None]
  - THROAT IRRITATION [None]
  - FLUSHING [None]
